FAERS Safety Report 14877366 (Version 1)
Quarter: 2018Q2

REPORT INFORMATION
  Report Type: Spontaneous
  Country: FR (occurrence: FR)
  Receive Date: 20180510
  Receipt Date: 20180510
  Transmission Date: 20180711
  Serious: Yes (Life-Threatening)
  Sender: FDA-Public Use
  Company Number: FR-ROCHE-2116867

PATIENT
  Age: 74 Year
  Sex: Male
  Weight: 100 kg

DRUGS (2)
  1. VALIUM [Suspect]
     Active Substance: DIAZEPAM
     Indication: AGITATION
     Dosage: 1 AMPOULE
     Route: 030
     Dates: start: 20180325, end: 20180325
  2. LOXAPAC [Suspect]
     Active Substance: LOXAPINE
     Indication: AGITATION
     Dosage: 3 AMPOULES
     Route: 030
     Dates: start: 20180325, end: 20180325

REACTIONS (3)
  - Hypertension [Recovered/Resolved]
  - Altered state of consciousness [Recovered/Resolved]
  - Dyskinesia [Recovered/Resolved]

NARRATIVE: CASE EVENT DATE: 20180325
